FAERS Safety Report 24023205 (Version 1)
Quarter: 2024Q2

REPORT INFORMATION
  Report Type: Spontaneous
  Country: CN (occurrence: CN)
  Receive Date: 20240627
  Receipt Date: 20240627
  Transmission Date: 20240716
  Serious: No
  Sender: FDA-Public Use
  Company Number: CN-ROCHE-3468003

PATIENT
  Age: 70 Year
  Sex: Female
  Weight: 51.0 kg

DRUGS (4)
  1. ALECENSA [Suspect]
     Active Substance: ALECTINIB HYDROCHLORIDE
     Indication: Lung neoplasm malignant
     Route: 048
     Dates: start: 20191023
  2. MUPIROCIN [Concomitant]
     Active Substance: MUPIROCIN
     Dates: start: 20231121
  3. POVIDONE-IODINE [Concomitant]
     Active Substance: POVIDONE-IODINE
  4. PIPERACILLIN\SULBACTAM [Concomitant]
     Active Substance: PIPERACILLIN\SULBACTAM
     Route: 042
     Dates: start: 20231121

REACTIONS (2)
  - Paronychia [Recovering/Resolving]
  - Paronychia [Recovering/Resolving]

NARRATIVE: CASE EVENT DATE: 20231020
